FAERS Safety Report 9785918 (Version 1)
Quarter: 2013Q4

REPORT INFORMATION
  Report Type: Report from Study
  Country: DZ (occurrence: DZ)
  Receive Date: 20131227
  Receipt Date: 20131227
  Transmission Date: 20140711
  Serious: Yes (Death)
  Sender: FDA-Public Use
  Company Number: DZ-SA-2013SA134859

PATIENT
  Age: 43 Year
  Sex: Female
  Weight: 113 kg

DRUGS (5)
  1. DOCETAXEL [Suspect]
     Indication: BREAST CANCER
     Route: 042
     Dates: start: 20090817, end: 20090817
  2. DOCETAXEL [Suspect]
     Indication: BREAST CANCER
     Route: 042
     Dates: start: 20091001, end: 20091001
  3. ONDANSETRON [Concomitant]
     Indication: ANTIEMETIC SUPPORTIVE CARE
     Route: 042
     Dates: start: 20091001, end: 20091001
  4. RANITIDINE [Concomitant]
     Indication: DUODENAL ULCER
     Dosage: DOSE: 50
     Route: 042
     Dates: start: 20091001, end: 20091001
  5. METHYLPREDNISOLONE [Concomitant]
     Indication: ANTIEMETIC SUPPORTIVE CARE
     Dosage: DOSE: 120
     Route: 048
     Dates: start: 20090930, end: 20091002

REACTIONS (1)
  - Death [Fatal]
